FAERS Safety Report 8544663-8 (Version None)
Quarter: 2012Q3

REPORT INFORMATION
  Report Type: 
  Country: None (occurrence: None)
  Receive Date: 20120727
  Receipt Date: 20120725
  Transmission Date: 20120928
  Serious: Yes (Death)
  Sender: FDA-Public Use
  Company Number: US-ROCHE-1077144

PATIENT
  Sex: Male
  Weight: 88.53 kg

DRUGS (1)
  1. XELODA [Suspect]
     Indication: BILE DUCT CANCER
     Route: 048
     Dates: start: 20120424

REACTIONS (6)
  - MOUTH BREATHING [None]
  - DEATH [None]
  - DRY MOUTH [None]
  - ABDOMINAL DISCOMFORT [None]
  - PAIN IN EXTREMITY [None]
  - COUGH [None]
